FAERS Safety Report 5424322-0 (Version None)
Quarter: 2007Q3

REPORT INFORMATION
  Report Type: 
  Country: None (occurrence: None)
  Receive Date: 20070823
  Receipt Date: 20070814
  Transmission Date: 20080115
  Serious: Yes (Hospitalization, Other)
  Sender: FDA-Public Use
  Company Number: FR-PFIZER INC-2007067994

PATIENT
  Sex: Male

DRUGS (1)
  1. SOMAVERT [Suspect]

REACTIONS (1)
  - GASTRIC CANCER [None]
